FAERS Safety Report 10971400 (Version 1)
Quarter: 2015Q1

REPORT INFORMATION
  Report Type: Spontaneous
  Country: GB (occurrence: GB)
  Receive Date: 20150331
  Receipt Date: 20150331
  Transmission Date: 20150721
  Serious: Yes (Other)
  Sender: FDA-Public Use
  Company Number: GB-TEVA-550626ISR

PATIENT
  Age: 82 Year
  Sex: Female

DRUGS (1)
  1. DIAZEPAM. [Suspect]
     Active Substance: DIAZEPAM
     Dosage: TAKEN FOR AROUND ONE YEAR
     Route: 065

REACTIONS (11)
  - Feeling abnormal [Unknown]
  - Arthralgia [Unknown]
  - Brain compression [Unknown]
  - Malaise [Unknown]
  - Pain [Unknown]
  - Clumsiness [Unknown]
  - Tremor [Unknown]
  - Myalgia [Unknown]
  - Pain in extremity [Unknown]
  - Ear discomfort [Unknown]
  - Eye disorder [Unknown]
